FAERS Safety Report 21507026 (Version 1)
Quarter: 2022Q4

REPORT INFORMATION
  Report Type: Spontaneous
  Country: US (occurrence: None)
  Receive Date: 20221026
  Receipt Date: 20221026
  Transmission Date: 20230112
  Serious: Yes (Death, Hospitalization)
  Sender: FDA-Public Use
  Company Number: US-ROCHE-3201041

PATIENT
  Age: 82 Year
  Sex: Male
  Weight: 63.560 kg

DRUGS (14)
  1. OCREVUS [Suspect]
     Active Substance: OCRELIZUMAB
     Indication: Secondary progressive multiple sclerosis
     Route: 042
     Dates: end: 202206
  2. OMEGA 3 [Concomitant]
     Active Substance: CAPSAICIN
  3. VITAMINS [Concomitant]
     Active Substance: VITAMINS
  4. AMOXICILLIN [Concomitant]
     Active Substance: AMOXICILLIN
  5. VITAMIN C [Concomitant]
     Active Substance: ASCORBIC ACID
  6. METRONIDAZOLE [Concomitant]
     Active Substance: METRONIDAZOLE
  7. PROBIOTICS NOS [Concomitant]
     Active Substance: PROBIOTICS NOS
  8. SERTRALINE [Concomitant]
     Active Substance: SERTRALINE HYDROCHLORIDE
  9. NORCO [Concomitant]
     Active Substance: ACETAMINOPHEN\HYDROCODONE BITARTRATE
  10. CALCIUM ASCORBATE [Concomitant]
     Active Substance: CALCIUM ASCORBATE
  11. VITAMIN B12 [Concomitant]
     Active Substance: CYANOCOBALAMIN
  12. BACLOFEN [Concomitant]
     Active Substance: BACLOFEN
  13. LYRICA [Concomitant]
     Active Substance: PREGABALIN
  14. MEMANTINE [Concomitant]
     Active Substance: MEMANTINE

REACTIONS (12)
  - Coma [Not Recovered/Not Resolved]
  - Asthenia [Not Recovered/Not Resolved]
  - Pneumonia [Fatal]
  - Lactic acidosis [Fatal]
  - Multiple sclerosis [Fatal]
  - Sepsis [Fatal]
  - Atrial fibrillation [Fatal]
  - Ventricular tachycardia [Fatal]
  - Acute respiratory failure [Fatal]
  - Encephalopathy [Fatal]
  - Pyrexia [Fatal]
  - Hyperammonaemia [Fatal]

NARRATIVE: CASE EVENT DATE: 20221011
